FAERS Safety Report 20145337 (Version 1)
Quarter: 2021Q4

REPORT INFORMATION
  Report Type: Report from Study
  Country: IT (occurrence: IT)
  Receive Date: 20211203
  Receipt Date: 20211203
  Transmission Date: 20220303
  Serious: Yes (Other)
  Sender: FDA-Public Use
  Company Number: None

PATIENT
  Age: 40 Year
  Sex: Female
  Weight: 85 kg

DRUGS (2)
  1. CARBOPLATIN [Suspect]
     Active Substance: CARBOPLATIN
     Indication: Cervix carcinoma
     Dosage: 440MILLIGRAM
     Dates: start: 20211022
  2. PACLITAXEL [Concomitant]
     Active Substance: PACLITAXEL
     Indication: Cervix carcinoma
     Dosage: 110MILLIGRAM
     Dates: start: 20211022

REACTIONS (2)
  - Tinnitus [Recovering/Resolving]
  - Ototoxicity [Recovering/Resolving]

NARRATIVE: CASE EVENT DATE: 20211105
